FAERS Safety Report 7656008-6 (Version None)
Quarter: 2011Q3

REPORT INFORMATION
  Report Type: 
  Country: None (occurrence: None)
  Receive Date: 20110801
  Receipt Date: 20110718
  Transmission Date: 20111222
  Serious: Yes (Hospitalization, Disabling, Other)
  Sender: FDA-Public Use
  Company Number: OSCN-NO-0901S-0034

PATIENT
  Age: 36 Year
  Sex: Female
  Weight: 45.5 kg

DRUGS (9)
  1. FUROSEMIDE [Concomitant]
  2. CALCIUM CARBONATE [Concomitant]
  3. TACROLIMUS (PROGRAF) (TACROLIMUS) [Concomitant]
  4. AZATHIOPRINE (IMUREL) (AZATHIOPRINE) [Concomitant]
  5. ALFACALCIDOL (ETALPHA) (ALFACALCIDOL) [Concomitant]
  6. INSULIN (INSULIN) [Concomitant]
  7. PREDNISOLONE [Concomitant]
  8. OMNISCAN [Suspect]
     Indication: PRODUCT USED FOR UNKNOWN INDICATION
     Dosage: 40 ML, SINGLE DOSE, INTRAVENOUS
     Route: 042
     Dates: start: 20011008, end: 20011008
  9. MEGLUMINE GADOTERATE (DOTAREM) (MEGLUMINE GADOTERATE) [Concomitant]

REACTIONS (8)
  - NEPHROGENIC SYSTEMIC FIBROSIS [None]
  - HYPOTENSION [None]
  - ACTIVITIES OF DAILY LIVING IMPAIRED [None]
  - OEDEMA [None]
  - GAIT DISTURBANCE [None]
  - VOMITING [None]
  - SUBCUTANEOUS NODULE [None]
  - BLOOD PHOSPHORUS INCREASED [None]
